FAERS Safety Report 6252598-9 (Version None)
Quarter: 2009Q3

REPORT INFORMATION
  Report Type: 
  Country: None (occurrence: None)
  Receive Date: 20090701
  Receipt Date: 20090623
  Transmission Date: 20100115
  Serious: Yes (Hospitalization, Other)
  Sender: FDA-Public Use
  Company Number: US-ROCHE-637510

PATIENT
  Sex: Female
  Weight: 81.6 kg

DRUGS (7)
  1. XELODA [Suspect]
     Dosage: FREQUENCY REPORTED AS 1 WEEK ON + 1 WEEK OFF
     Route: 048
     Dates: start: 20090215, end: 20090315
  2. TYKERB [Suspect]
     Route: 048
     Dates: start: 20090206
  3. TYKERB [Suspect]
     Route: 048
  4. LISINOPRIL [Concomitant]
  5. CARVEDILOL [Concomitant]
  6. POTASSIUM CHLORIDE [Concomitant]
     Dosage: POTASSIUM SALT
  7. FRUSEMIDE [Concomitant]

REACTIONS (11)
  - CANDIDIASIS [None]
  - CHILLS [None]
  - DIARRHOEA [None]
  - INFLUENZA LIKE ILLNESS [None]
  - MUCOSAL INFLAMMATION [None]
  - NAUSEA [None]
  - PULMONARY THROMBOSIS [None]
  - PYREXIA [None]
  - STOMATITIS [None]
  - THROMBOSIS [None]
  - VOMITING [None]
